FAERS Safety Report 4757088-8 (Version None)
Quarter: 2005Q3

REPORT INFORMATION
  Report Type: 
  Country: None (occurrence: None)
  Receive Date: 20050829
  Receipt Date: 20050819
  Transmission Date: 20060218
  Serious: Yes (Death)
  Sender: FDA-Public Use
  Company Number: KII-2005-0018215

PATIENT
  Age: 67 Year
  Sex: Male

DRUGS (1)
  1. MORPHINE SULFATE [Suspect]
     Indication: CANCER PAIN
     Dosage: SEE TEXT, ORAL
     Route: 048
     Dates: start: 20050729

REACTIONS (5)
  - DYSPNOEA [None]
  - EYE ROLLING [None]
  - MIOSIS [None]
  - SOMNOLENCE [None]
  - VOMITING [None]
